FAERS Safety Report 13184956 (Version 1)
Quarter: 2017Q1

REPORT INFORMATION
  Report Type: Spontaneous
  Country: BR (occurrence: BR)
  Receive Date: 20170203
  Receipt Date: 20170203
  Transmission Date: 20170428
  Serious: Yes (Death, Other)
  Sender: FDA-Public Use
  Company Number: BR-BAYER-2017-016507

PATIENT
  Weight: 1.9 kg

DRUGS (2)
  1. ACETYLSALICYLIC ACID({=100 MG) [Suspect]
     Active Substance: ASPIRIN
     Dosage: UNK UNK, STARTED AT 31 WEEKS OF GESTATION
     Route: 064
  2. ENOXAPARIN [Concomitant]
     Active Substance: ENOXAPARIN
     Dosage: STARTED AT 31 WEEKS OF GESTATION, AND STOPPED AT 33 WEEKS OF GESTATION
     Route: 064

REACTIONS (6)
  - Foetal placental thrombosis [Fatal]
  - Foetal distress syndrome [None]
  - Visceral congestion [None]
  - Neonatal aspiration [None]
  - Foetal exposure during pregnancy [None]
  - Foetal growth restriction [None]
